FAERS Safety Report 9849669 (Version 1)
Quarter: 2013Q4

REPORT INFORMATION
  Report Type: Spontaneous
  Country: US (occurrence: None)
  Receive Date: 20131224
  Receipt Date: 20131224
  Transmission Date: 20140711
  Serious: Yes (Other)
  Sender: FDA-Public Use
  Company Number: PHEH2013US023562

PATIENT
  Age: 35 Year
  Sex: Female
  Weight: 56.8 kg

DRUGS (2)
  1. GILENYA (FINGOLIMOD) CAPSULE, 0.5MG [Suspect]
     Indication: MULTIPLE SCLEROSIS
     Route: 048
     Dates: start: 20131108
  2. TYLENOL (PARACETAMOL) [Suspect]
     Route: 048

REACTIONS (3)
  - Atrioventricular block second degree [None]
  - Atrioventricular block first degree [None]
  - Heart rate decreased [None]
